FAERS Safety Report 18585980 (Version 1)
Quarter: 2020Q4

REPORT INFORMATION
  Report Type: Spontaneous
  Country: CN (occurrence: CN)
  Receive Date: 20201207
  Receipt Date: 20201207
  Transmission Date: 20210114
  Serious: Yes (Hospitalization, Other)
  Sender: FDA-Public Use
  Company Number: CN-PFIZER INC-2020475361

PATIENT
  Age: 27 Year
  Sex: Female
  Weight: 48 kg

DRUGS (3)
  1. METHOTREXATE. [Suspect]
     Active Substance: METHOTREXATE
     Indication: ECTOPIC PREGNANCY
     Dosage: 19 MG, 1X/DAY
     Route: 030
     Dates: start: 20201114, end: 20201118
  2. ZI YUN (ANORDRIN\MIFEPRISTONE) [Suspect]
     Active Substance: ANORDRIN\MIFEPRISTONE
     Indication: ECTOPIC PREGNANCY
     Dosage: 1 DF, 1X/DAY (ON AN EMPTY STOMACH)
     Route: 048
     Dates: start: 20201114, end: 20201120
  3. SODIUM CHLORIDE. [Concomitant]
     Active Substance: SODIUM CHLORIDE
     Indication: VEHICLE SOLUTION USE
     Dosage: 4 ML, 1X/DAY
     Route: 030
     Dates: start: 20201114, end: 20201118

REACTIONS (7)
  - Transaminases increased [Recovering/Resolving]
  - Off label use [Unknown]
  - Swelling of eyelid [Recovering/Resolving]
  - Swelling face [Recovering/Resolving]
  - Periorbital oedema [Recovering/Resolving]
  - Pruritus [Recovering/Resolving]
  - Dermatitis [Recovering/Resolving]

NARRATIVE: CASE EVENT DATE: 20201114
